FAERS Safety Report 9293909 (Version 1)
Quarter: 2013Q1

REPORT INFORMATION
  Report Type: Spontaneous
  Country: US (occurrence: None)
  Receive Date: 20121218
  Receipt Date: 20121218
  Transmission Date: 20140127
  Serious: Yes (Other)
  Sender: FDA-Public Use
  Company Number: PHEH2012US012684

PATIENT
  Age: 57 Year
  Sex: Female

DRUGS (7)
  1. FEMARA [Suspect]
  2. LETROZOLE [Suspect]
  3. ASPIRIN (ACETYLSALICYLIC ACID) [Concomitant]
  4. CLONAZEPAM (CLONAZEPAM) [Concomitant]
  5. SPIRIVA (TIOTROPIUM BROMIDE) [Concomitant]
  6. ATENOLOL (ATENOLOL) [Concomitant]
  7. CLONIDINE(CLONIDINE) [Concomitant]

REACTIONS (7)
  - Depression [None]
  - Back pain [None]
  - Pain in extremity [None]
  - Pain [None]
  - Alopecia [None]
  - Weight increased [None]
  - Arthralgia [None]
